FAERS Safety Report 15219915 (Version 1)
Quarter: 2018Q3

REPORT INFORMATION
  Report Type: Spontaneous
  Country: IT (occurrence: IT)
  Receive Date: 20180731
  Receipt Date: 20180731
  Transmission Date: 20181010
  Serious: Yes (Hospitalization)
  Sender: FDA-Public Use
  Company Number: IT-ORION CORPORATION ORION PHARMA-18_00004131

PATIENT
  Age: 80 Year
  Sex: Male

DRUGS (7)
  1. STALEVO [Suspect]
     Active Substance: CARBIDOPA\ENTACAPONE\LEVODOPA
     Indication: PARKINSON^S DISEASE
     Dosage: STRENGTH: 50/12.5/200  MG
     Route: 048
     Dates: start: 20170101, end: 20171107
  2. MADOPAR [Suspect]
     Active Substance: BENSERAZIDE HYDROCHLORIDE\LEVODOPA
     Indication: PARKINSON^S DISEASE
     Dosage: 100 MG + 25 MG
     Route: 048
     Dates: start: 20170101, end: 20171107
  3. MIRTAZAPINE. [Suspect]
     Active Substance: MIRTAZAPINE
     Indication: MAJOR DEPRESSION
     Route: 048
     Dates: start: 20170101, end: 20171107
  4. XANAX [Concomitant]
     Active Substance: ALPRAZOLAM
     Route: 065
  5. ACETYLSALICYLIC ACID [Concomitant]
     Active Substance: ASPIRIN
     Route: 065
  6. PANTORC [Concomitant]
     Active Substance: PANTOPRAZOLE SODIUM
     Route: 065
  7. ARIXTRA [Concomitant]
     Active Substance: FONDAPARINUX SODIUM
     Dosage: 2.5 MG/0.5 ML
     Route: 065

REACTIONS (2)
  - Psychomotor hyperactivity [Unknown]
  - Delusion [Unknown]

NARRATIVE: CASE EVENT DATE: 20171106
